FAERS Safety Report 6614663-3 (Version None)
Quarter: 2010Q1

REPORT INFORMATION
  Report Type: 
  Country: None (occurrence: None)
  Receive Date: 20100226
  Receipt Date: 20100211
  Transmission Date: 20100710
  Serious: Yes (Hospitalization)
  Sender: FDA-Public Use
  Company Number: 2009001899

PATIENT
  Age: 61 Year
  Sex: Male

DRUGS (14)
  1. ERLOTINIB (ERLOTINIB) (TABLET) (ERLOTINIB) [Suspect]
     Indication: LUNG NEOPLASM MALIGNANT
     Dosage: (150 MG,QD), ORAL
     Dates: start: 20090101
  2. DOCETAXEL [Suspect]
     Indication: LUNG NEOPLASM MALIGNANT
     Dosage: (75 MG/M2,Q3W), INTRAVENOUS
     Route: 042
     Dates: start: 20081229, end: 20090525
  3. NEBIVOLOL HCL [Concomitant]
  4. FRUMIL (FRUMIL) [Concomitant]
  5. PROCORALAN [Concomitant]
  6. SPIRIVA [Concomitant]
  7. SYMBICORT (SYMBICORT) [Concomitant]
  8. FENISTIL (DIMETINDENE MALEATE) [Concomitant]
  9. DEXAMETHASONE TAB [Concomitant]
  10. ZOFRON (ONDANSETRON HYDROCHLORIDE) [Concomitant]
  11. CIPRALEX [Concomitant]
  12. INHOHEP (HEPARIN-FRACTION, SODIUM SALT) [Concomitant]
  13. SINTROM [Concomitant]
  14. METHIMAZOLE [Concomitant]

REACTIONS (3)
  - FEBRILE NEUTROPENIA [None]
  - HAEMOPTYSIS [None]
  - INTERNATIONAL NORMALISED RATIO INCREASED [None]
